FAERS Safety Report 7134867-3 (Version None)
Quarter: 2010Q4

REPORT INFORMATION
  Report Type: 
  Country: None (occurrence: None)
  Receive Date: 20101203
  Receipt Date: 20101126
  Transmission Date: 20110411
  Serious: Yes (Death, Hospitalization)
  Sender: FDA-Public Use
  Company Number: TW-BRISTOL-MYERS SQUIBB COMPANY-15399660

PATIENT
  Age: 71 Year
  Sex: Male

DRUGS (12)
  1. CEPHRADINE [Suspect]
     Indication: URINARY TRACT INFECTION
     Dosage: 1G (8D);ALSO TAKEN 7D
     Route: 042
  2. CEPHRADINE [Suspect]
     Indication: CELLULITIS
     Dosage: 1G (8D);ALSO TAKEN 7D
     Route: 042
  3. CYCLOPHOSPHAMIDE [Suspect]
     Route: 048
  4. LANSOPRAZOLE [Concomitant]
     Indication: PEPTIC ULCER
  5. GLIPIZIDE [Concomitant]
     Indication: DIABETES MELLITUS
  6. COLCHICINE [Concomitant]
     Indication: GOUT
  7. PREDNISOLONE [Concomitant]
     Indication: GOUT
  8. SULFINPYRAZONE [Concomitant]
     Indication: GOUT
  9. CARVEDILOL [Concomitant]
     Indication: MYOCARDIAL ISCHAEMIA
  10. ISORDIL [Concomitant]
     Indication: MYOCARDIAL ISCHAEMIA
  11. IMIDAPRIL HCL [Concomitant]
     Indication: MYOCARDIAL ISCHAEMIA
  12. GEMFIBROZIL [Concomitant]
     Indication: DYSLIPIDAEMIA

REACTIONS (4)
  - HAEMATOMA [None]
  - HAEMATURIA [None]
  - MELAENA [None]
  - SHOCK HAEMORRHAGIC [None]
